FAERS Safety Report 19707857 (Version 1)
Quarter: 2021Q3

REPORT INFORMATION
  Report Type: Spontaneous
  Country: CA (occurrence: CA)
  Receive Date: 20210817
  Receipt Date: 20210817
  Transmission Date: 20211014
  Serious: Yes (Other)
  Sender: FDA-Public Use
  Company Number: CA-AMERICAN REGENT INC-2021002151

PATIENT
  Age: 54 Year
  Sex: Female

DRUGS (1)
  1. VENOFER [Suspect]
     Active Substance: IRON SUCROSE
     Indication: ANAEMIA
     Dosage: 300 MILLIGRAM, ONE EVERY THREE WEEKS
     Route: 042

REACTIONS (2)
  - Hyperphosphaturia [Recovered/Resolved]
  - Hypophosphataemia [Recovered/Resolved]
